FAERS Safety Report 9117074 (Version 2)
Quarter: 2014Q1

REPORT INFORMATION
  Report Type: Spontaneous
  Country: US (occurrence: US)
  Receive Date: 20130208
  Receipt Date: 20140321
  Transmission Date: 20141002
  Serious: Yes (Hospitalization)
  Sender: FDA-Public Use
  Company Number: US-BAYER-2013-015011

PATIENT
  Age: 26 Year
  Sex: Female

DRUGS (10)
  1. YAZ [Suspect]
     Dosage: UNK
     Dates: start: 2006
  2. GIANVI [Suspect]
     Dosage: UNK
     Dates: start: 2006
  3. YASMIN [Suspect]
     Dosage: UNK
     Dates: start: 2006
  4. BACTRIM [Concomitant]
  5. RELPAX [Concomitant]
  6. AZITHROMYCIN [Concomitant]
  7. CIPROFLOXACIN HYDROCHLORIDE [Concomitant]
  8. NITROFURANTOIN [Concomitant]
  9. MINOCYCLINE [Concomitant]
  10. LIPITOR [Concomitant]

REACTIONS (4)
  - Cerebrovascular accident [None]
  - Injury [None]
  - Pain [None]
  - Emotional distress [None]
